FAERS Safety Report 13385374 (Version 1)
Quarter: 2017Q1

REPORT INFORMATION
  Report Type: Spontaneous
  Country: US (occurrence: US)
  Receive Date: 20170330
  Receipt Date: 20170330
  Transmission Date: 20170429
  Serious: No
  Sender: FDA-Public Use
  Company Number: None

PATIENT
  Age: 35 Year
  Sex: Female
  Weight: 56.25 kg

DRUGS (5)
  1. ADDERALL [Concomitant]
     Active Substance: AMPHETAMINE ASPARTATE\AMPHETAMINE SULFATE\DEXTROAMPHETAMINE SACCHARATE\DEXTROAMPHETAMINE SULFATE
  2. SOMA [Concomitant]
     Active Substance: CARISOPRODOL
  3. XANAX [Concomitant]
     Active Substance: ALPRAZOLAM
  4. DEXTROAMPHET SACCHARAT, AMPHET ASPARTATE, DEXTROAMPHET SULFATE AND AMPHET SULFAT [Suspect]
     Active Substance: AMPHETAMINE ASPARTATE\AMPHETAMINE SULFATE\DEXTROAMPHETAMINE SACCHARATE\DEXTROAMPHETAMINE SULFATE
     Indication: ATTENTION DEFICIT/HYPERACTIVITY DISORDER
     Dosage: ?          QUANTITY:75 TABLET(S);?
     Route: 048
     Dates: start: 20170316, end: 20170326
  5. IBPROPHERAN [Concomitant]

REACTIONS (19)
  - Somnolence [None]
  - Drug ineffective [None]
  - Condition aggravated [None]
  - Confusional state [None]
  - Urticaria [None]
  - Therapy change [None]
  - Social problem [None]
  - Depression [None]
  - Insomnia [None]
  - Emotional disorder [None]
  - Thinking abnormal [None]
  - Withdrawal syndrome [None]
  - Impaired driving ability [None]
  - Activities of daily living impaired [None]
  - Lethargy [None]
  - Mental disorder [None]
  - Disturbance in attention [None]
  - Anxiety [None]
  - Product substitution issue [None]

NARRATIVE: CASE EVENT DATE: 20170317
